FAERS Safety Report 4490865-X (Version None)
Quarter: 2004Q4

REPORT INFORMATION
  Report Type: 
  Country: None (occurrence: None)
  Receive Date: 20041027
  Receipt Date: 20041014
  Transmission Date: 20050328
  Serious: Yes (Hospitalization)
  Sender: FDA-Public Use
  Company Number: ERP04000335

PATIENT
  Age: 56 Year
  Sex: Female

DRUGS (2)
  1. ACTONEL [Suspect]
     Indication: OSTEOPOROSIS
     Dosage: 35 MG, 1/WEEK, ORAL
     Route: 048
     Dates: start: 20040804, end: 20040920
  2. DEVARON [Concomitant]

REACTIONS (19)
  - ARRHYTHMIA [None]
  - BLEPHAROSPASM [None]
  - CARDIAC DISORDER [None]
  - CHEST PAIN [None]
  - DIARRHOEA [None]
  - ECG SIGNS OF MYOCARDIAL ISCHAEMIA [None]
  - EYE PAIN [None]
  - FATIGUE [None]
  - FEAR [None]
  - GASTROOESOPHAGEAL REFLUX DISEASE [None]
  - INSOMNIA [None]
  - NAUSEA [None]
  - NOCTURNAL DYSPNOEA [None]
  - PALPITATIONS [None]
  - PARAESTHESIA [None]
  - SLEEP ATTACKS [None]
  - SUFFOCATION FEELING [None]
  - TACHYCARDIA [None]
  - TREMOR [None]
